FAERS Safety Report 4709686-5 (Version None)
Quarter: 2005Q2

REPORT INFORMATION
  Report Type: 
  Country: None (occurrence: None)
  Receive Date: 20050629
  Receipt Date: 20050506
  Transmission Date: 20051028
  Serious: No
  Sender: FDA-Public Use
  Company Number: 05P-163-0299977-00

PATIENT
  Age: 78 Year
  Sex: Female
  Weight: 58.514 kg

DRUGS (5)
  1. HUMIRA [Suspect]
     Indication: RHEUMATOID ARTHRITIS
     Dosage: 40 MG, 1 IN 2 WK, SUBCUTANEOUS
     Route: 058
     Dates: start: 20050407
  2. VICODIN [Concomitant]
  3. RISEDRONATE SODIUM [Concomitant]
  4. ATENOLOL [Concomitant]
  5. CLONIDINE [Concomitant]

REACTIONS (2)
  - FATIGUE [None]
  - HYPERHIDROSIS [None]
